FAERS Safety Report 20880229 (Version 1)
Quarter: 2022Q2

REPORT INFORMATION
  Report Type: Spontaneous
  Country: US (occurrence: US)
  Receive Date: 20220526
  Receipt Date: 20220526
  Transmission Date: 20220721
  Serious: Yes (Hospitalization, Congenital Anomaly, Other)
  Sender: FDA-Public Use
  Company Number: US-GLAXOSMITHKLINE-US2022GSK081568

PATIENT

DRUGS (3)
  1. FERROUS SULFATE [Suspect]
     Active Substance: FERROUS SULFATE
     Indication: Anaemia
     Dosage: UNK
     Route: 064
  2. ALBUTEROL [Suspect]
     Active Substance: ALBUTEROL
     Indication: Asthma
     Dosage: UNK
     Route: 064
  3. FLUTICASONE [Suspect]
     Active Substance: FLUTICASONE
     Indication: Rhinitis allergic
     Dosage: UNK
     Route: 064

REACTIONS (8)
  - Asymmetric gluteal fold [Recovered/Resolved]
  - Naevus flammeus [Recovered/Resolved]
  - Melanosis [Recovered/Resolved]
  - Rash macular [Recovered/Resolved]
  - Spina bifida occulta [Recovered/Resolved]
  - Nervous system cyst [Recovered/Resolved]
  - Urachal abnormality [Unknown]
  - Foetal exposure during pregnancy [Unknown]
